FAERS Safety Report 9934161 (Version 1)
Quarter: 2014Q1

REPORT INFORMATION
  Report Type: Spontaneous
  Country: US (occurrence: US)
  Receive Date: 20140228
  Receipt Date: 20140228
  Transmission Date: 20141002
  Serious: Yes (Other)
  Sender: FDA-Public Use
  Company Number: US-SA-2014SA024126

PATIENT
  Age: 76 Year
  Sex: Female

DRUGS (12)
  1. MULTAQ [Suspect]
     Indication: ATRIAL FIBRILLATION
     Route: 048
     Dates: start: 20140120
  2. LEXAPRO [Suspect]
     Indication: STRESS
     Route: 065
  3. LEXAPRO [Suspect]
     Indication: STRESS
     Route: 065
  4. COENZYME Q10 [Concomitant]
  5. TRYPTOPHAN, L- [Concomitant]
  6. AMINOGRAN FOOD SUPPLEMENT [Concomitant]
  7. CURCUMEN [Concomitant]
  8. ACETYLCYSTEINE [Concomitant]
  9. ALPHA LIPOIC ACID [Concomitant]
  10. VITAMIN C [Concomitant]
  11. MELATONIN [Concomitant]
  12. FISH OIL [Concomitant]

REACTIONS (4)
  - Renal disorder [Unknown]
  - Atrial fibrillation [Unknown]
  - Stress [Unknown]
  - Wrong technique in drug usage process [Unknown]
